FAERS Safety Report 8620145-X (Version None)
Quarter: 2012Q3

REPORT INFORMATION
  Report Type: 
  Country: None (occurrence: None)
  Receive Date: 20120824
  Receipt Date: 20120731
  Transmission Date: 20120928
  Serious: No
  Sender: FDA-Public Use
  Company Number: US-009507513-1208USA000561

PATIENT

DRUGS (8)
  1. NEXIUM [Concomitant]
  2. VICTRELIS [Suspect]
     Indication: HEPATIC CIRRHOSIS
     Dosage: UNK
     Route: 048
     Dates: start: 20120105
  3. PROVIGIL [Concomitant]
  4. PEG-INTRON [Concomitant]
  5. PROCRIT [Concomitant]
  6. RIBASPHERE [Concomitant]
  7. TRAZODONE HCL [Concomitant]
  8. VENLAFAXINE HYDROCHOLRIDE [Concomitant]

REACTIONS (4)
  - DEPRESSION [None]
  - BONE PAIN [None]
  - DECREASED APPETITE [None]
  - WEIGHT DECREASED [None]
